FAERS Safety Report 10565526 (Version 1)
Quarter: 2014Q4

REPORT INFORMATION
  Report Type: Spontaneous
  Country: US (occurrence: None)
  Receive Date: 20141104
  Receipt Date: 20141104
  Transmission Date: 20150529
  Serious: Yes (Life-Threatening, Hospitalization)
  Sender: FDA-Public Use
  Company Number: None

PATIENT
  Age: 67 Year
  Sex: Male
  Weight: 66.8 kg

DRUGS (2)
  1. PHENYTOIN. [Suspect]
     Active Substance: PHENYTOIN
     Indication: SEIZURE
     Route: 048
     Dates: start: 20140924, end: 20141024
  2. LEVETIRACETAM. [Suspect]
     Active Substance: LEVETIRACETAM
     Indication: SEIZURE
     Route: 048
     Dates: start: 20141010, end: 20141014

REACTIONS (6)
  - Dermatitis exfoliative [None]
  - Rash generalised [None]
  - Rash maculo-papular [None]
  - Pruritus [None]
  - Swelling face [None]
  - Eosinophilia [None]

NARRATIVE: CASE EVENT DATE: 20141014
